FAERS Safety Report 8143671-9 (Version None)
Quarter: 2012Q1

REPORT INFORMATION
  Report Type: 
  Country: None (occurrence: None)
  Receive Date: 20120217
  Receipt Date: 20120213
  Transmission Date: 20120608
  Serious: Yes (Life-Threatening, Hospitalization, Other)
  Sender: FDA-Public Use
  Company Number: US-ROXANE LABORATORIES, INC.-2010-RO-01565RO

PATIENT
  Age: 25 Year
  Sex: Female
  Weight: 60 kg

DRUGS (2)
  1. AMLODIPINE [Suspect]
     Route: 048
  2. CALCIUM GLUCONATE [Suspect]
     Route: 042

REACTIONS (8)
  - LETHARGY [None]
  - OVERDOSE [None]
  - SINUS TACHYCARDIA [None]
  - CONFUSIONAL STATE [None]
  - PULMONARY ARTERIAL WEDGE PRESSURE INCREASED [None]
  - DRUG INEFFECTIVE [None]
  - SHOCK [None]
  - HYPERDYNAMIC LEFT VENTRICLE [None]
